FAERS Safety Report 6430628-9 (Version None)
Quarter: 2009Q4

REPORT INFORMATION
  Report Type: 
  Country: None (occurrence: None)
  Receive Date: 20091106
  Receipt Date: 20091029
  Transmission Date: 20100525
  Serious: Yes (Death)
  Sender: FDA-Public Use
  Company Number: B0583253A

PATIENT
  Sex: Female
  Weight: 38 kg

DRUGS (3)
  1. TYKERB [Suspect]
     Indication: BREAST CANCER
     Dosage: 1250MG PER DAY
     Route: 048
     Dates: start: 20090625, end: 20090701
  2. XELODA [Suspect]
     Indication: DRUG USE FOR UNKNOWN INDICATION
     Dosage: 2400MG PER DAY
     Route: 048
     Dates: start: 20090625, end: 20090701
  3. LOPERAMIDE [Concomitant]
     Route: 048

REACTIONS (3)
  - BREAST CANCER [None]
  - DIARRHOEA [None]
  - DYSPNOEA [None]
